FAERS Safety Report 7184539-4 (Version None)
Quarter: 2010Q4

REPORT INFORMATION
  Report Type: 
  Country: None (occurrence: None)
  Receive Date: 20101222
  Receipt Date: 20101216
  Transmission Date: 20110411
  Serious: Yes (Hospitalization)
  Sender: FDA-Public Use
  Company Number: AU-ELI_LILLY_AND_COMPANY-AU201011003940

PATIENT
  Sex: Male

DRUGS (4)
  1. BYETTA [Suspect]
     Indication: TYPE 2 DIABETES MELLITUS
     Dosage: 5 UG, 2/D
     Dates: start: 20100626, end: 20101008
  2. METFORMIN [Concomitant]
     Dosage: 1 G, DAILY (1/D)
     Route: 048
     Dates: end: 20101008
  3. AVAPRO [Concomitant]
     Indication: BLOOD PRESSURE
  4. NORVASC [Concomitant]
     Indication: BLOOD PRESSURE

REACTIONS (3)
  - DEHYDRATION [None]
  - HYPERTENSION [None]
  - RENAL FAILURE ACUTE [None]
